FAERS Safety Report 4378200-9 (Version None)
Quarter: 2004Q2

REPORT INFORMATION
  Report Type: 
  Country: None (occurrence: None)
  Receive Date: 20040609
  Receipt Date: 20040526
  Transmission Date: 20050107
  Serious: Yes (Other)
  Sender: FDA-Public Use
  Company Number: USA040568694

PATIENT
  Age: 78 Year
  Sex: Female
  Weight: 56 kg

DRUGS (2)
  1. EVISTA [Suspect]
     Indication: OSTEOPENIA
     Dosage: 60 MG DAY
     Dates: start: 20010101
  2. ACTONEL [Concomitant]

REACTIONS (8)
  - BODY HEIGHT DECREASED [None]
  - DIZZINESS [None]
  - FEELING ABNORMAL [None]
  - INFLUENZA LIKE ILLNESS [None]
  - POLYMYALGIA RHEUMATICA [None]
  - SPINAL FRACTURE [None]
  - TACHYCARDIA [None]
  - TEMPORAL ARTERITIS [None]
